FAERS Safety Report 25559124 (Version 1)
Quarter: 2025Q3

REPORT INFORMATION
  Report Type: Spontaneous
  Country: US (occurrence: US)
  Receive Date: 20250715
  Receipt Date: 20250715
  Transmission Date: 20251021
  Serious: No
  Sender: NOVO NORDISK
  Company Number: US-NOVOPROD-1393002

PATIENT
  Age: 80 Year
  Sex: Female

DRUGS (2)
  1. OZEMPIC [Suspect]
     Active Substance: SEMAGLUTIDE
     Route: 058
  2. OZEMPIC [Suspect]
     Active Substance: SEMAGLUTIDE
     Indication: Type 2 diabetes mellitus
     Dosage: 1 MG, QW
     Route: 058

REACTIONS (5)
  - Weight increased [Unknown]
  - Injection site swelling [Recovering/Resolving]
  - Injection site erythema [Unknown]
  - Blood glucose increased [Unknown]
  - Injection site discharge [Recovered/Resolved]

NARRATIVE: CASE EVENT DATE: 20241204
